FAERS Safety Report 8612021-3 (Version None)
Quarter: 2012Q3

REPORT INFORMATION
  Report Type: 
  Country: None (occurrence: None)
  Receive Date: 20120822
  Receipt Date: 20120816
  Transmission Date: 20120928
  Serious: Yes (Other)
  Sender: FDA-Public Use
  Company Number: JP-GLAXOSMITHKLINE-B0823779A

PATIENT
  Sex: Male

DRUGS (4)
  1. INSULIN [Suspect]
     Indication: DIABETES MELLITUS
     Route: 065
  2. PAXIL [Suspect]
     Route: 048
  3. CPAP [Concomitant]
     Indication: SLEEP APNOEA SYNDROME
     Route: 065
  4. PAXIL [Suspect]
     Indication: DEPRESSION
     Dosage: 1IUAX PER DAY
     Route: 048

REACTIONS (7)
  - EATING DISORDER [None]
  - MYOCARDIAL INFARCTION [None]
  - WEIGHT INCREASED [None]
  - DECREASED APPETITE [None]
  - PNEUMONIA [None]
  - WEIGHT DECREASED [None]
  - STRESS [None]
